FAERS Safety Report 20967346 (Version 6)
Quarter: 2022Q3

REPORT INFORMATION
  Report Type: Report from Study
  Country: US (occurrence: None)
  Receive Date: 20220616
  Receipt Date: 20220925
  Transmission Date: 20221027
  Serious: Yes (Hospitalization, Disabling)
  Sender: FDA-Public Use
  Company Number: US-ROCHE-3119161

PATIENT
  Age: 63 Year
  Sex: Male
  Weight: 97.51 kg

DRUGS (9)
  1. ATEZOLIZUMAB [Suspect]
     Active Substance: ATEZOLIZUMAB
     Indication: Gastrooesophageal cancer
     Dosage: DATE OF MOST RECENT DOSE OF ATEZOLIZUMAB PRIOR TO AE AND SAE ONSET: 31/MAY/2022
     Route: 042
     Dates: start: 20220509
  2. TJ-004309 [Suspect]
     Active Substance: TJ-004309
     Indication: Gastrooesophageal cancer
     Dosage: DATE OF MOST RECENT DOSE OF ULILEDLIMAB PRIOR TO AE AND SAE ONSET: 31/MAY/2022?50 MG/ML
     Route: 042
     Dates: start: 20220509
  3. METHYLPREDNISOLONE [Concomitant]
     Active Substance: METHYLPREDNISOLONE
     Indication: Chills
     Dates: start: 20220509, end: 20220509
  4. MEPERIDINE [Concomitant]
     Active Substance: MEPERIDINE
     Indication: Chills
     Dates: start: 20220509, end: 20220509
  5. SODIUM CHLORIDE [Concomitant]
     Active Substance: SODIUM CHLORIDE
     Indication: Hypotension
     Route: 042
     Dates: start: 20220509, end: 20220509
  6. GABAPENTIN [Concomitant]
     Active Substance: GABAPENTIN
     Indication: Back pain
     Route: 042
     Dates: start: 20220509
  7. HYDROMORPHONE [Concomitant]
     Active Substance: HYDROMORPHONE
     Indication: Back pain
     Route: 048
     Dates: start: 20220527
  8. PROMETHAZINE [Concomitant]
     Active Substance: PROMETHAZINE HYDROCHLORIDE
     Indication: Nausea
     Dates: start: 20220509, end: 20220509
  9. FENTANYL [Concomitant]
     Active Substance: FENTANYL
     Indication: Back pain
     Route: 062
     Dates: start: 20220527

REACTIONS (1)
  - Back pain [Not Recovered/Not Resolved]

NARRATIVE: CASE EVENT DATE: 20220602
